FAERS Safety Report 4876176-9 (Version None)
Quarter: 2006Q1

REPORT INFORMATION
  Report Type: 
  Country: None (occurrence: None)
  Receive Date: 20060106
  Receipt Date: 20051226
  Transmission Date: 20060701
  Serious: Yes (Hospitalization)
  Sender: FDA-Public Use
  Company Number: 310014M05FRA

PATIENT
  Age: 22 Year
  Sex: Female

DRUGS (3)
  1. GONAL-F [Suspect]
     Indication: OVULATION INDUCTION
     Dates: start: 20031201
  2. GONADOTROPHINE CHORIONIQUE ENDO (CHORIONIC GONADOTROPHINE) [Concomitant]
  3. CLOMID [Concomitant]

REACTIONS (2)
  - HYPERTRIGLYCERIDAEMIA [None]
  - PANCREATITIS ACUTE [None]
